FAERS Safety Report 24590649 (Version 1)
Quarter: 2024Q4

REPORT INFORMATION
  Report Type: Spontaneous
  Country: JP (occurrence: JP)
  Receive Date: 20241107
  Receipt Date: 20241107
  Transmission Date: 20250115
  Serious: Yes (Other)
  Sender: ELI LILLY AND COMPANY
  Company Number: JP-ELI_LILLY_AND_COMPANY-JP202411001571

PATIENT
  Age: 71 Year
  Sex: Female

DRUGS (3)
  1. VERZENIO [Suspect]
     Active Substance: ABEMACICLIB
     Indication: Breast cancer recurrent
     Dosage: 150 MG, BID
     Route: 048
     Dates: start: 202410, end: 20241024
  2. VERZENIO [Suspect]
     Active Substance: ABEMACICLIB
     Dosage: 100 UNK
     Route: 048
     Dates: start: 20241016
  3. FEMARA [Suspect]
     Active Substance: LETROZOLE
     Indication: Breast cancer recurrent
     Dosage: 2.5 MG
     Route: 048

REACTIONS (3)
  - Liver function test increased [Recovering/Resolving]
  - Neutropenia [Unknown]
  - Diarrhoea [Unknown]
